FAERS Safety Report 8588322-4 (Version None)
Quarter: 2012Q3

REPORT INFORMATION
  Report Type: 
  Country: None (occurrence: None)
  Receive Date: 20120813
  Receipt Date: 20120801
  Transmission Date: 20120928
  Serious: Yes (Hospitalization, Other)
  Sender: FDA-Public Use
  Company Number: US-ELI_LILLY_AND_COMPANY-US201205006834

PATIENT
  Age: 71 Year
  Sex: Female
  Weight: 82.54 kg

DRUGS (15)
  1. PRAVASTATIN [Concomitant]
     Dosage: 20 MG, QD
  2. NASACORT [Concomitant]
  3. NSAID'S [Concomitant]
  4. CLARITIN [Concomitant]
     Dosage: UNK, PRN
  5. M.V.I. [Concomitant]
  6. OMEPRAZOLE [Concomitant]
     Dosage: 20 MG, QD
  7. PREDNISONE TAB [Concomitant]
     Dosage: 30 MG, QD
  8. DILTIAZEM [Concomitant]
     Dosage: 120 MG, QD
  9. ATORVASTATIN [Concomitant]
     Dosage: 20 MG, QD
  10. ASPIRIN [Concomitant]
     Dosage: 81 MG, QD
  11. CYMBALTA [Suspect]
     Indication: DEPRESSION
     Dosage: 60 MG, QD
     Route: 048
     Dates: end: 20120515
  12. RALOXIFENE HYDROCHLORIDE [Concomitant]
     Dosage: 60 MG, QD
  13. AMITRIPTYLINE HCL [Concomitant]
     Dosage: 10 MG, EACH EVENING
  14. SYNTHROID [Concomitant]
     Dosage: 75 MG, QD
  15. QVAR 40 [Concomitant]
     Dosage: 80 UG, BID

REACTIONS (1)
  - EOSINOPHILIC PNEUMONIA CHRONIC [None]
